FAERS Safety Report 6314989-7 (Version None)
Quarter: 2009Q3

REPORT INFORMATION
  Report Type: 
  Country: None (occurrence: None)
  Receive Date: 20090819
  Receipt Date: 20090817
  Transmission Date: 20100115
  Serious: Yes (Other)
  Sender: FDA-Public Use
  Company Number: B0588888A

PATIENT
  Sex: Male

DRUGS (1)
  1. ZOVIRAX [Suspect]
     Dosage: 700MG THREE TIMES PER DAY
     Route: 042
     Dates: start: 20090723, end: 20090727

REACTIONS (2)
  - RENAL FAILURE ACUTE [None]
  - WRONG TECHNIQUE IN DRUG USAGE PROCESS [None]
